FAERS Safety Report 6762649-0 (Version None)
Quarter: 2010Q2

REPORT INFORMATION
  Report Type: 
  Country: None (occurrence: None)
  Receive Date: 20100609
  Receipt Date: 20100603
  Transmission Date: 20101027
  Serious: Yes (Death, Other)
  Sender: FDA-Public Use
  Company Number: PL-CELGENEUS-129-20785-10060446

PATIENT
  Age: 71 Year
  Sex: Male

DRUGS (1)
  1. THALIDOMIDE [Suspect]
     Indication: MULTIPLE MYELOMA
     Dosage: 100-300MG
     Route: 048
     Dates: start: 20060301, end: 20060801

REACTIONS (5)
  - ANAEMIA [None]
  - HYPERCALCAEMIA [None]
  - LEUKAEMIA PLASMACYTIC [None]
  - LIGHT CHAIN ANALYSIS INCREASED [None]
  - RENAL FAILURE [None]
